FAERS Safety Report 17717631 (Version 1)
Quarter: 2020Q2

REPORT INFORMATION
  Report Type: Spontaneous
  Country: US (occurrence: US)
  Receive Date: 20200427
  Receipt Date: 20200427
  Transmission Date: 20200714
  Serious: Yes (Other)
  Sender: FDA-Public Use
  Company Number: None

PATIENT
  Age: 28 Year
  Sex: Female
  Weight: 46.8 kg

DRUGS (1)
  1. TRIGEN METHYLPHENIDATE ER 36 MG TABLET [Suspect]
     Active Substance: METHYLPHENIDATE HYDROCHLORIDE
     Indication: ATTENTION DEFICIT HYPERACTIVITY DISORDER
     Dosage: ?          QUANTITY:30 TABLET(S);?
     Route: 048
     Dates: start: 20200424, end: 20200427

REACTIONS (5)
  - Migraine [None]
  - Therapeutic product effect incomplete [None]
  - Abdominal pain upper [None]
  - Therapeutic response shortened [None]
  - Product substitution issue [None]

NARRATIVE: CASE EVENT DATE: 20200425
